FAERS Safety Report 19349735 (Version 1)
Quarter: 2021Q2

REPORT INFORMATION
  Report Type: Other
  Country: AT (occurrence: AT)
  Receive Date: 20210531
  Receipt Date: 20210531
  Transmission Date: 20210717
  Serious: Yes (Death)
  Sender: FDA-Public Use
  Company Number: AT-CELLTRION INC.-2021AT007131

PATIENT

DRUGS (7)
  1. OBINUTUZUMAB. [Suspect]
     Active Substance: OBINUTUZUMAB
     Indication: NODAL MARGINAL ZONE B-CELL LYMPHOMA
     Dosage: UNK
     Route: 042
     Dates: start: 201609, end: 201707
  2. RITUXIMAB (UNKNOWN) [Suspect]
     Active Substance: RITUXIMAB
     Dosage: STOP DATE: 2017
     Route: 065
  3. BENDAMUSTINE [Suspect]
     Active Substance: BENDAMUSTINE
     Indication: NODAL MARGINAL ZONE B-CELL LYMPHOMA
     Dosage: UNK
     Route: 065
     Dates: start: 201307, end: 201602
  4. LENALIDOMIDE [Suspect]
     Active Substance: LENALIDOMIDE
     Indication: NODAL MARGINAL ZONE B-CELL LYMPHOMA
     Dosage: UNK
     Route: 065
     Dates: start: 201306, end: 201602
  5. RITUXIMAB (UNKNOWN) [Suspect]
     Active Substance: RITUXIMAB
     Indication: NODAL MARGINAL ZONE B-CELL LYMPHOMA
     Dosage: UNK
     Route: 065
     Dates: start: 201307, end: 201602
  6. IDELALISIB [Suspect]
     Active Substance: IDELALISIB
     Indication: NODAL MARGINAL ZONE B-CELL LYMPHOMA
     Dosage: UNK
     Route: 065
     Dates: start: 201603, end: 201605
  7. OBINUTUZUMAB. [Suspect]
     Active Substance: OBINUTUZUMAB
     Dosage: STOP DATE: 2017
     Route: 042

REACTIONS (3)
  - Hepatic failure [Fatal]
  - Neoplasm progression [Fatal]
  - Off label use [Unknown]

NARRATIVE: CASE EVENT DATE: 20210101
